FAERS Safety Report 4888252-5 (Version None)
Quarter: 2006Q1

REPORT INFORMATION
  Report Type: 
  Country: None (occurrence: None)
  Receive Date: 20060119
  Receipt Date: 20060101
  Transmission Date: 20060701
  Serious: Yes (Other)
  Sender: FDA-Public Use
  Company Number: 200610184BWH

PATIENT

DRUGS (1)
  1. SORAFENIB [Suspect]
     Indication: THYROID GLAND CANCER
     Dosage: 400 MG, BID; ORAL
     Route: 048
     Dates: start: 20041222, end: 20050224

REACTIONS (3)
  - LOCALISED INFECTION [None]
  - MALIGNANT NEOPLASM PROGRESSION [None]
  - SYNCOPE [None]
